FAERS Safety Report 11569772 (Version 1)
Quarter: 2015Q3

REPORT INFORMATION
  Report Type: Spontaneous
  Country: US (occurrence: US)
  Receive Date: 20150929
  Receipt Date: 20150929
  Transmission Date: 20151125
  Serious: No
  Sender: FDA-Public Use
  Company Number: US-SHIONOGI, INC-2015000909

PATIENT
  Age: 63 Year
  Sex: Female

DRUGS (3)
  1. OSPHENA [Suspect]
     Active Substance: OSPEMIFENE
     Indication: VAGINAL HAEMORRHAGE
     Dosage: 60 MG, QD
     Route: 048
     Dates: start: 201508, end: 20150814
  2. OSPHENA [Suspect]
     Active Substance: OSPEMIFENE
     Indication: OFF LABEL USE
  3. FEMARA [Concomitant]
     Active Substance: LETROZOLE
     Indication: NEOPLASM MALIGNANT
     Dosage: UNK
     Route: 065
     Dates: start: 201504

REACTIONS (4)
  - Off label use [Unknown]
  - Drug dose omission [Unknown]
  - Hair texture abnormal [Recovering/Resolving]
  - Drug prescribing error [Unknown]

NARRATIVE: CASE EVENT DATE: 201508
